FAERS Safety Report 8558566-6 (Version None)
Quarter: 2012Q3

REPORT INFORMATION
  Report Type: 
  Country: None (occurrence: None)
  Receive Date: 20120801
  Receipt Date: 20120725
  Transmission Date: 20120928
  Serious: Yes (Other)
  Sender: FDA-Public Use
  Company Number: BR-PFIZER INC-2012180129

PATIENT
  Age: 53 Year
  Sex: Female
  Weight: 72 kg

DRUGS (8)
  1. OMEPRAZOLE [Concomitant]
     Indication: GASTRITIS
     Dosage: ONE TABLET ONCE DAILY
     Dates: start: 19970101, end: 20110301
  2. SOMALGIN CARDIO [Concomitant]
     Indication: ANTICOAGULANT THERAPY
     Dosage: ONE TABLET ONCE DAILY
     Dates: start: 20080101
  3. ZETIA [Concomitant]
     Indication: BLOOD CHOLESTEROL INCREASED
     Dosage: UNK
     Dates: start: 20110101
  4. LIPITOR [Suspect]
     Indication: BLOOD CHOLESTEROL INCREASED
     Dosage: 1 TABLET ONCE DAILY
     Route: 048
     Dates: start: 19950101
  5. BISOPROLOL FUMARATE [Concomitant]
     Indication: CARDIAC DISORDER
     Dosage: 25 MG, 1X/DAY
     Dates: start: 20110101
  6. PANTOPRAZOLE [Concomitant]
     Indication: GASTROOESOPHAGEAL REFLUX DISEASE
     Dosage: 40 MG, 1X/DAY
     Dates: start: 20110101
  7. ATORVASTATIN CALCIUM [Suspect]
     Indication: BLOOD CHOLESTEROL INCREASED
     Dosage: 10 MG, 1X/DAY
     Route: 048
     Dates: start: 19950101
  8. CRESTOR [Concomitant]
     Indication: BLOOD CHOLESTEROL INCREASED
     Dosage: 5 MG, 1X/DAY
     Dates: start: 20080101, end: 20120601

REACTIONS (5)
  - INFARCTION [None]
  - OSTEONECROSIS [None]
  - ARTHROPATHY [None]
  - SLUGGISHNESS [None]
  - FATIGUE [None]
